FAERS Safety Report 18840528 (Version 1)
Quarter: 2021Q1

REPORT INFORMATION
  Report Type: Report from Study
  Country: None (occurrence: CA)
  Receive Date: 20210204
  Receipt Date: 20210204
  Transmission Date: 20210419
  Serious: Yes (Hospitalization)
  Sender: FDA-Public Use
  Company Number: CA-ABBVIE-21K-028-3756069-00

PATIENT
  Age: 69 Year
  Sex: Female

DRUGS (1)
  1. RINVOQ [Suspect]
     Active Substance: UPADACITINIB
     Indication: RHEUMATOID ARTHRITIS
     Route: 048
     Dates: start: 20210122, end: 202101

REACTIONS (5)
  - Gastrointestinal scarring [Unknown]
  - Faecal vomiting [Unknown]
  - Dizziness [Unknown]
  - Pneumonia [Unknown]
  - Lung disorder [Unknown]

NARRATIVE: CASE EVENT DATE: 2021
